FAERS Safety Report 10399094 (Version 4)
Quarter: 2015Q3

REPORT INFORMATION
  Report Type: Spontaneous
  Country: US (occurrence: US)
  Receive Date: 20140821
  Receipt Date: 20150716
  Transmission Date: 20151125
  Serious: No
  Sender: FDA-Public Use
  Company Number: US-ELI_LILLY_AND_COMPANY-US201403009460

PATIENT
  Age: 57 Year
  Sex: Female
  Weight: 74.38 kg

DRUGS (4)
  1. NEUROMIN                           /00628101/ [Concomitant]
     Dosage: UNK
  2. FORTEO [Suspect]
     Active Substance: TERIPARATIDE
     Indication: PSEUDARTHROSIS
     Dosage: UNK, QD
     Route: 065
     Dates: start: 20140314, end: 20140428
  3. PERCODAN [Concomitant]
     Active Substance: ASPIRIN\OXYCODONE HYDROCHLORIDE
  4. NORCO [Concomitant]
     Active Substance: ACETAMINOPHEN\HYDROCODONE BITARTRATE

REACTIONS (13)
  - Bone disorder [Unknown]
  - Vomiting [Unknown]
  - Pain [Unknown]
  - Feeling abnormal [Unknown]
  - Bone pain [Recovered/Resolved]
  - Hot flush [Recovered/Resolved]
  - Off label use [Recovered/Resolved]
  - Fall [Unknown]
  - Hyperhidrosis [Recovered/Resolved]
  - Chest pain [Unknown]
  - Feeling cold [Not Recovered/Not Resolved]
  - Arthralgia [Not Recovered/Not Resolved]
  - Groin pain [Unknown]

NARRATIVE: CASE EVENT DATE: 2014
